FAERS Safety Report 19587290 (Version 1)
Quarter: 2021Q3

REPORT INFORMATION
  Report Type: Spontaneous
  Country: US (occurrence: US)
  Receive Date: 20210720
  Receipt Date: 20210720
  Transmission Date: 20211014
  Serious: Yes (Hospitalization, Disabling)
  Sender: FDA-Public Use
  Company Number: None

PATIENT
  Age: 61 Year
  Sex: Male

DRUGS (8)
  1. ATORVASTATIN [Suspect]
     Active Substance: ATORVASTATIN
  2. MYCOPHENOLATE 250MG [Suspect]
     Active Substance: MYCOPHENOLIC ACID
     Indication: RENAL TRANSPLANT
  3. GABAPENTIN. [Suspect]
     Active Substance: GABAPENTIN
  4. TACROLIMUS 1MG, 0.5MG [Suspect]
     Active Substance: TACROLIMUS
     Indication: RENAL TRANSPLANT
  5. LEVETIRACETAM. [Suspect]
     Active Substance: LEVETIRACETAM
  6. VITAMIN D [Suspect]
     Active Substance: VITAMIN D NOS
  7. ALENDRONATE [Suspect]
     Active Substance: ALENDRONATE SODIUM
  8. NIACIN. [Suspect]
     Active Substance: NIACIN

REACTIONS (1)
  - Pneumonia [None]

NARRATIVE: CASE EVENT DATE: 20210715
